FAERS Safety Report 26002969 (Version 1)
Quarter: 2025Q4

REPORT INFORMATION
  Report Type: Spontaneous
  Country: US (occurrence: US)
  Receive Date: 20251106
  Receipt Date: 20251106
  Transmission Date: 20260118
  Serious: No
  Sender: SANOFI AVENTIS
  Company Number: US-SA-2025SA318615

PATIENT
  Sex: Male

DRUGS (1)
  1. QFITLIA [Suspect]
     Active Substance: FITUSIRAN
     Indication: Factor IX deficiency
     Dosage: UNK
     Route: 065
     Dates: start: 20250901

REACTIONS (2)
  - Haemorrhage [Recovered/Resolved]
  - Arthralgia [Recovered/Resolved]

NARRATIVE: CASE EVENT DATE: 20250101
